FAERS Safety Report 8858724 (Version 3)
Quarter: 2013Q1

REPORT INFORMATION
  Report Type: Spontaneous
  Country: US (occurrence: US)
  Receive Date: 20121024
  Receipt Date: 20130121
  Transmission Date: 20140127
  Serious: Yes (Other)
  Sender: FDA-Public Use
  Company Number: US-009507513-1210USA010019

PATIENT
  Age: 22 Year
  Sex: Female

DRUGS (1)
  1. SAPHRIS [Suspect]
     Dosage: UNK
     Route: 060
     Dates: start: 20120905, end: 20120926

REACTIONS (2)
  - Agranulocytosis [Recovered/Resolved]
  - Neutrophil count decreased [Recovered/Resolved]
